FAERS Safety Report 4380983-9 (Version None)
Quarter: 2004Q2

REPORT INFORMATION
  Report Type: 
  Country: None (occurrence: None)
  Receive Date: 20040614
  Receipt Date: 20040521
  Transmission Date: 20050107
  Serious: Yes (Other)
  Sender: FDA-Public Use
  Company Number: GBWYE811708JUN04

PATIENT
  Sex: Female

DRUGS (2)
  1. RAPAMUNE [Suspect]
     Dosage: UNKNOWN
     Route: 065
  2. MYCOPHENOLATE MOFETIL [Concomitant]

REACTIONS (1)
  - BONE MARROW DEPRESSION [None]
